FAERS Safety Report 13183509 (Version 1)
Quarter: 2017Q1

REPORT INFORMATION
  Report Type: Spontaneous
  Country: US (occurrence: US)
  Receive Date: 20170203
  Receipt Date: 20170203
  Transmission Date: 20170428
  Serious: Yes (Other)
  Sender: FDA-Public Use
  Company Number: US-BION-005947

PATIENT
  Age: 73 Year
  Sex: Female
  Weight: 59 kg

DRUGS (1)
  1. ALEVE [Suspect]
     Active Substance: NAPROXEN SODIUM
     Indication: PAIN
     Route: 048
     Dates: start: 20170122, end: 20170124

REACTIONS (3)
  - Product difficult to swallow [Not Recovered/Not Resolved]
  - Wrong technique in product usage process [Recovered/Resolved with Sequelae]
  - Choking [Recovered/Resolved]

NARRATIVE: CASE EVENT DATE: 20170122
